FAERS Safety Report 16591521 (Version 2)
Quarter: 2019Q3

REPORT INFORMATION
  Report Type: Spontaneous
  Country: US (occurrence: US)
  Receive Date: 20190718
  Receipt Date: 20190724
  Transmission Date: 20191004
  Serious: Yes (Other)
  Sender: FDA-Public Use
  Company Number: US-PFIZER INC-2019304827

PATIENT
  Age: 3 Month
  Sex: Female

DRUGS (1)
  1. PROCAINE BENZYLPENICILLIN [Suspect]
     Active Substance: PENICILLIN G PROCAINE
     Indication: PNEUMONIA
     Dosage: 600000 IU, SINGLE (INTRAMUSCULARLY IN THE LEFT MIDLATERAL THIGH)
     Route: 030
     Dates: start: 1965

REACTIONS (2)
  - Embolia cutis medicamentosa [Recovering/Resolving]
  - Gangrene [Recovering/Resolving]

NARRATIVE: CASE EVENT DATE: 1965
